FAERS Safety Report 12606938 (Version 1)
Quarter: 2016Q3

REPORT INFORMATION
  Report Type: Spontaneous
  Country: US (occurrence: US)
  Receive Date: 20160729
  Receipt Date: 20160729
  Transmission Date: 20161109
  Serious: Yes (Hospitalization)
  Sender: FDA-Public Use
  Company Number: US-IGSA-GTI003740

PATIENT
  Age: 71 Year
  Sex: Female
  Weight: 98 kg

DRUGS (16)
  1. LEVOTHYROXINE. [Concomitant]
     Active Substance: LEVOTHYROXINE
  2. POTASSIUM CHLORIDE. [Concomitant]
     Active Substance: POTASSIUM CHLORIDE
  3. GAMUNEX-C [Suspect]
     Active Substance: HUMAN IMMUNOGLOBULIN G
     Indication: MYASTHENIA GRAVIS
     Route: 042
     Dates: start: 20151109, end: 20151113
  4. AZATHIOPRINE. [Concomitant]
     Active Substance: AZATHIOPRINE
  5. BENICAR [Concomitant]
     Active Substance: OLMESARTAN MEDOXOMIL
  6. PEPCID [Concomitant]
     Active Substance: FAMOTIDINE
  7. FUROSEMIDE. [Concomitant]
     Active Substance: FUROSEMIDE
  8. JANUVIA [Concomitant]
     Active Substance: SITAGLIPTIN PHOSPHATE
  9. GAMUNEX-C [Suspect]
     Active Substance: HUMAN IMMUNOGLOBULIN G
     Indication: MYASTHENIA GRAVIS
     Route: 042
     Dates: start: 20121011
  10. SYMBICORT [Concomitant]
     Active Substance: BUDESONIDE\FORMOTEROL FUMARATE DIHYDRATE
  11. PREDNISONE. [Concomitant]
     Active Substance: PREDNISONE
  12. GAMUNEX-C [Suspect]
     Active Substance: HUMAN IMMUNOGLOBULIN G
     Indication: MYASTHENIA GRAVIS
     Route: 042
     Dates: start: 20121011
  13. GAMUNEX-C [Suspect]
     Active Substance: HUMAN IMMUNOGLOBULIN G
     Indication: MYASTHENIA GRAVIS
     Route: 042
     Dates: start: 20151109, end: 20151113
  14. ASPIRIN. [Concomitant]
     Active Substance: ASPIRIN
  15. VITAMIN D /00107901/ [Concomitant]
     Active Substance: ERGOCALCIFEROL
  16. MYCOPHENOLATE [Concomitant]
     Active Substance: MYCOPHENOLIC ACID

REACTIONS (2)
  - Meningitis aseptic [Recovered/Resolved]
  - Pyrexia [Recovered/Resolved]

NARRATIVE: CASE EVENT DATE: 20151113
